FAERS Safety Report 24207508 (Version 1)
Quarter: 2024Q3

REPORT INFORMATION
  Report Type: Spontaneous
  Country: CA (occurrence: CA)
  Receive Date: 20240814
  Receipt Date: 20240814
  Transmission Date: 20241016
  Serious: Yes (Death)
  Sender: PFIZER
  Company Number: CA-PFIZER INC-PV202400092568

PATIENT
  Age: 52 Year
  Sex: Female
  Weight: 83.3 kg

DRUGS (4)
  1. ZIRABEV [Suspect]
     Active Substance: BEVACIZUMAB-BVZR
     Indication: Glioma
     Dosage: 840 MG (10MG/KG Q2WEEKS)
     Dates: start: 20240715
  2. ZIRABEV [Suspect]
     Active Substance: BEVACIZUMAB-BVZR
     Dosage: 840 MG (10MG/KG Q2WEEKS)
     Dates: start: 20240715
  3. ZIRABEV [Suspect]
     Active Substance: BEVACIZUMAB-BVZR
     Dosage: 840 MG (10MG/KG Q2WEEKS)
     Dates: start: 20240729
  4. ZIRABEV [Suspect]
     Active Substance: BEVACIZUMAB-BVZR
     Dosage: 840 MG (10MG/KG Q2WEEKS)
     Dates: start: 20240729

REACTIONS (5)
  - Death [Fatal]
  - Blood pressure increased [Unknown]
  - Mobility decreased [Unknown]
  - Fatigue [Unknown]
  - Lethargy [Unknown]

NARRATIVE: CASE EVENT DATE: 20240715
